FAERS Safety Report 4355252-3 (Version None)
Quarter: 2004Q2

REPORT INFORMATION
  Report Type: 
  Country: None (occurrence: None)
  Receive Date: 20040504
  Receipt Date: 20040419
  Transmission Date: 20050107
  Serious: Yes (Hospitalization)
  Sender: FDA-Public Use
  Company Number: 2004027615

PATIENT
  Age: 45 Year
  Sex: Female

DRUGS (2)
  1. REGAINE (MINOXIDIL) [Suspect]
     Indication: ALOPECIA
     Dosage: TOPICAL
     Route: 061
     Dates: start: 20040226, end: 20040320
  2. CAPTOPRIL [Concomitant]

REACTIONS (8)
  - ABDOMINAL PAIN [None]
  - ASTHENIA [None]
  - CIRCULATORY COLLAPSE [None]
  - DYSPNOEA [None]
  - HYPERVENTILATION [None]
  - PANIC ATTACK [None]
  - SENSORY DISTURBANCE [None]
  - TREMOR [None]
